FAERS Safety Report 12840732 (Version 1)
Quarter: 2016Q4

REPORT INFORMATION
  Report Type: Not Available
  Country: None (occurrence: US)
  Receive Date: 20161012
  Receipt Date: 20161012
  Transmission Date: 20170207
  Serious: No
  Sender: FDA-Public Use
  Company Number: US-AKORN-35255

PATIENT

DRUGS (1)
  1. NYSTATIN ORAL SUSPENSION, USP [Suspect]
     Active Substance: NYSTATIN

REACTIONS (1)
  - Burning sensation [None]
